FAERS Safety Report 7168272-0 (Version None)
Quarter: 2010Q4

REPORT INFORMATION
  Report Type: 
  Country: None (occurrence: None)
  Receive Date: 20101216
  Receipt Date: 20101203
  Transmission Date: 20110411
  Serious: Yes (Other)
  Sender: FDA-Public Use
  Company Number: AR-AMGEN-ARGSP2010008164

PATIENT

DRUGS (1)
  1. ENBREL [Suspect]
     Indication: RHEUMATOID ARTHRITIS
     Dosage: 50 MG, WEEKLY
     Route: 058
     Dates: start: 20080930, end: 20091215

REACTIONS (4)
  - CONJUNCTIVITIS [None]
  - HERPES VIRUS INFECTION [None]
  - HYPERSENSITIVITY [None]
  - URINARY TRACT INFECTION [None]
